FAERS Safety Report 7018517-2 (Version None)
Quarter: 2010Q3

REPORT INFORMATION
  Report Type: 
  Country: None (occurrence: None)
  Receive Date: 20100924
  Receipt Date: 20100909
  Transmission Date: 20110219
  Serious: Yes (Hospitalization)
  Sender: FDA-Public Use
  Company Number: 2010003202

PATIENT
  Age: 58 Year
  Sex: Male
  Weight: 71.6683 kg

DRUGS (10)
  1. ERLOTINIB HYDROCHLORIDE [Suspect]
     Indication: NON-SMALL CELL LUNG CANCER
     Dosage: 150 MG, QD, ORAL
     Route: 048
     Dates: start: 20100625, end: 20100716
  2. PAZOPANIB/ PLACEBO [Suspect]
     Indication: NON-SMALL CELL LUNG CANCER
     Dosage: 600 MG, QD, ORAL
     Route: 048
     Dates: start: 20100625, end: 20100716
  3. LISINOPRIL [Concomitant]
  4. LIPITOR [Concomitant]
  5. HALCION [Concomitant]
  6. NAPROXEN [Concomitant]
  7. COMPAZINE [Concomitant]
  8. ALBUTEROL [Concomitant]
  9. MEGACE [Concomitant]
  10. LOMOTIL [Concomitant]

REACTIONS (7)
  - ABDOMINAL DISTENSION [None]
  - ANAEMIA [None]
  - DUODENAL ULCER HAEMORRHAGE [None]
  - GASTROINTESTINAL HAEMORRHAGE [None]
  - HAEMOGLOBIN DECREASED [None]
  - OESOPHAGEAL ULCER [None]
  - RED BLOOD CELL COUNT DECREASED [None]
